FAERS Safety Report 5635881-7 (Version None)
Quarter: 2008Q1

REPORT INFORMATION
  Report Type: 
  Country: None (occurrence: None)
  Receive Date: 20080221
  Receipt Date: 20080207
  Transmission Date: 20080703
  Serious: Yes (Hospitalization, Other)
  Sender: FDA-Public Use
  Company Number: 2007US002847

PATIENT
  Age: 49 Year
  Sex: Male

DRUGS (2)
  1. AMBISOME [Suspect]
     Indication: MENINGITIS CRYPTOCOCCAL
     Dosage: 300 MG, IUD/QD, IV DRIP
     Route: 041
     Dates: start: 20070627, end: 20070717
  2. ANCOTIL (FLUCYTOSINE) [Concomitant]

REACTIONS (4)
  - ACUTE RESPIRATORY DISTRESS SYNDROME [None]
  - DRUG INEFFECTIVE [None]
  - HYPOKALAEMIA [None]
  - PNEUMONIA [None]
